FAERS Safety Report 9048852 (Version 1)
Quarter: 2013Q1

REPORT INFORMATION
  Report Type: Spontaneous
  Country: US (occurrence: US)
  Receive Date: 20130204
  Receipt Date: 20130204
  Transmission Date: 20140127
  Serious: Yes (Hospitalization)
  Sender: FDA-Public Use
  Company Number: US-BAYER-2013-012894

PATIENT
  Age: 18 Year
  Sex: Female

DRUGS (8)
  1. YAZ [Suspect]
  2. METHYLPREDNISOLONE [Concomitant]
     Dosage: 4 MG, UNK
  3. AZITHROMYCIN [Concomitant]
     Dosage: 250 MG, TAKE 2 TABLETS ON DAY 1. THEN 1 TABLET ON DAY 2 THROUGH 5
     Route: 048
  4. IBUPROFEN [Concomitant]
  5. INFLUENZA VACCINE [Concomitant]
  6. NAPROSYN [Concomitant]
  7. MOTRIN [Concomitant]
     Indication: PAIN
  8. NEXIUM [Concomitant]

REACTIONS (2)
  - Pulmonary embolism [None]
  - Deep vein thrombosis [None]
